FAERS Safety Report 17596445 (Version 2)
Quarter: 2020Q2

REPORT INFORMATION
  Report Type: Spontaneous
  Country: US (occurrence: US)
  Receive Date: 20200330
  Receipt Date: 20200415
  Transmission Date: 20200713
  Serious: No
  Sender: FDA-Public Use
  Company Number: US-JNJFOC-20200338212

PATIENT
  Sex: Male

DRUGS (4)
  1. WARFARIN [Concomitant]
     Active Substance: WARFARIN
     Indication: PRODUCT USED FOR UNKNOWN INDICATION
     Dosage: ON AN UNKNOWN DATE, TWO WEEKS AGO IN 2020, AFTER HAVING BEEN ON ZYRTEC REGULARLY, HE EXPERIENCED A S
     Route: 065
  2. ZYRTEC [Suspect]
     Active Substance: CETIRIZINE HYDROCHLORIDE
     Indication: SINUS DISORDER
     Dosage: HE STARTED TAKING ZYRTEC REGULARLY.
     Route: 048
     Dates: start: 202003
  3. ZYRTEC [Suspect]
     Active Substance: CETIRIZINE HYDROCHLORIDE
     Indication: PRODUCT USED FOR UNKNOWN INDICATION
     Dosage: HE TOOK ONE ZYRTEC AT 0630 BECAUSE HE WAS HAVING SINUS PROBLEMS; AT 2330, HE HAD FORGOTTEN THAT HE T
     Route: 048
     Dates: start: 20200323
  4. ZYRTEC [Suspect]
     Active Substance: CETIRIZINE HYDROCHLORIDE
     Indication: UPPER-AIRWAY COUGH SYNDROME
     Dosage: ON UNKNOWN DATES HE EXPERIENCED POST NASAL DRIP WHICH AFFECTED HIS VOCAL CORDS, DRAINAGE, AND SNEEZI
     Route: 048

REACTIONS (4)
  - Epistaxis [Recovered/Resolved]
  - Product use in unapproved indication [Unknown]
  - Overdose [Unknown]
  - Therapeutic response unexpected [Unknown]

NARRATIVE: CASE EVENT DATE: 202003
